FAERS Safety Report 8625015-9 (Version None)
Quarter: 2012Q3

REPORT INFORMATION
  Report Type: 
  Country: None (occurrence: None)
  Receive Date: 20120827
  Receipt Date: 20120816
  Transmission Date: 20120928
  Serious: Yes (Hospitalization)
  Sender: FDA-Public Use
  Company Number: CA-BRISTOL-MYERS SQUIBB COMPANY-16865255

PATIENT
  Age: 29 Year
  Sex: Male

DRUGS (1)
  1. YERVOY [Suspect]
     Indication: METASTATIC MALIGNANT MELANOMA
     Dosage: INF:1
     Route: 042
     Dates: start: 20120802

REACTIONS (3)
  - DIZZINESS [None]
  - NEOPLASM MALIGNANT [None]
  - NAUSEA [None]
